FAERS Safety Report 7021575-2 (Version None)
Quarter: 2010Q3

REPORT INFORMATION
  Report Type: 
  Country: None (occurrence: None)
  Receive Date: 20100928
  Receipt Date: 20100917
  Transmission Date: 20110219
  Serious: Yes (Other)
  Sender: FDA-Public Use
  Company Number: 2010SP048125

PATIENT
  Age: 25 Year
  Sex: Female

DRUGS (3)
  1. NUVARING [Suspect]
     Indication: CONTRACEPTION
     Dosage: VAG
     Route: 067
     Dates: start: 20090501
  2. IBUPROFEN [Concomitant]
  3. MEDROL [Concomitant]

REACTIONS (3)
  - CIRCULATORY COLLAPSE [None]
  - FALL [None]
  - SYSTEMIC LUPUS ERYTHEMATOSUS [None]
